FAERS Safety Report 19404889 (Version 1)
Quarter: 2021Q2

REPORT INFORMATION
  Report Type: Spontaneous
  Country: US (occurrence: US)
  Receive Date: 20210611
  Receipt Date: 20210611
  Transmission Date: 20210717
  Serious: No
  Sender: FDA-Public Use
  Company Number: US-MSNLABS-2021MSNSPO00149

PATIENT

DRUGS (3)
  1. ROSUVASTATIN TABLETS 5 MG [Suspect]
     Active Substance: ROSUVASTATIN
     Indication: BLOOD TRIGLYCERIDES
     Route: 065
     Dates: start: 202103, end: 20210523
  2. SYNTHROID [Concomitant]
     Active Substance: LEVOTHYROXINE SODIUM
     Route: 065
  3. ROSUVASTATIN TABLETS 5 MG [Suspect]
     Active Substance: ROSUVASTATIN
     Indication: BLOOD CHOLESTEROL
     Route: 065
     Dates: start: 202103, end: 20210523

REACTIONS (1)
  - Memory impairment [Recovering/Resolving]
